FAERS Safety Report 7487349-3 (Version None)
Quarter: 2011Q2

REPORT INFORMATION
  Report Type: 
  Country: None (occurrence: None)
  Receive Date: 20110518
  Receipt Date: 20110510
  Transmission Date: 20111010
  Serious: Yes (Hospitalization, Other)
  Sender: FDA-Public Use
  Company Number: US-ASTELLAS-2011US001875

PATIENT
  Sex: Male
  Weight: 81 kg

DRUGS (4)
  1. PROGRAF [Suspect]
     Indication: RENAL TRANSPLANT
     Dosage: UNK
     Route: 048
     Dates: start: 20110120
  2. PROGRAF [Suspect]
     Dosage: 0.5 MG, BID
     Route: 048
     Dates: start: 20110415
  3. CELLCEPT [Suspect]
     Indication: RENAL TRANSPLANT
     Dosage: UNK
     Route: 048
     Dates: start: 20110122
  4. CELLCEPT [Suspect]
     Dosage: 500 MG, BID
     Route: 048
     Dates: start: 20110415, end: 20110421

REACTIONS (9)
  - INSOMNIA [None]
  - KIDNEY TRANSPLANT REJECTION [None]
  - DIARRHOEA [None]
  - DRUG INEFFECTIVE [None]
  - IMMUNOSUPPRESSANT DRUG LEVEL INCREASED [None]
  - NAUSEA [None]
  - HYPOVOLAEMIA [None]
  - RENAL FAILURE ACUTE [None]
  - VOMITING [None]
